FAERS Safety Report 14187677 (Version 1)
Quarter: 2017Q4

REPORT INFORMATION
  Report Type: Spontaneous
  Country: US (occurrence: None)
  Receive Date: 20171113
  Receipt Date: 20171113
  Transmission Date: 20180321
  Serious: No
  Sender: FDA-Public Use
  Company Number: None

PATIENT
  Age: 87 Year
  Sex: Female

DRUGS (1)
  1. ORITAVANCIN 1200MG MEDICINES COMPANY [Suspect]
     Active Substance: ORITAVANCIN
     Indication: ENDOCARDITIS
     Route: 042
     Dates: start: 20170919, end: 20170929

REACTIONS (3)
  - Infusion related reaction [None]
  - Back pain [None]
  - Tremor [None]

NARRATIVE: CASE EVENT DATE: 20170929
